FAERS Safety Report 12877366 (Version 1)
Quarter: 2016Q4

REPORT INFORMATION
  Report Type: Spontaneous
  Country: US (occurrence: US)
  Receive Date: 20161024
  Receipt Date: 20161024
  Transmission Date: 20170207
  Serious: No
  Sender: FDA-Public Use
  Company Number: US-UNIQUE PHARMACEUTICAL LABORATORIES-2015RIS00164

PATIENT
  Sex: Male

DRUGS (1)
  1. CETIRIZINE HYDROCHLORIDE. [Suspect]
     Active Substance: CETIRIZINE HYDROCHLORIDE
     Indication: MULTIPLE ALLERGIES
     Dosage: 10 MG, ONCE
     Route: 048
     Dates: start: 20151122, end: 20151122

REACTIONS (3)
  - Drug ineffective [Unknown]
  - Lip swelling [Unknown]
  - Lip disorder [Unknown]

NARRATIVE: CASE EVENT DATE: 20151122
